FAERS Safety Report 16840000 (Version 1)
Quarter: 2019Q3

REPORT INFORMATION
  Report Type: Spontaneous
  Country: US (occurrence: US)
  Receive Date: 20190923
  Receipt Date: 20190923
  Transmission Date: 20191005
  Serious: No
  Sender: FDA-Public Use
  Company Number: US-PFIZER INC-2019406354

PATIENT
  Age: 53 Year
  Sex: Female

DRUGS (1)
  1. IBRANCE [Suspect]
     Active Substance: PALBOCICLIB
     Dosage: 100 MG, CYCLIC (DAILY, 21 DAYS, THEN 7 DAYS OFF TAKE WITH FOOD)
     Route: 048
     Dates: start: 20190816

REACTIONS (3)
  - Nausea [Unknown]
  - Peripheral swelling [Unknown]
  - Alopecia [Unknown]
